FAERS Safety Report 9469637 (Version 2)
Quarter: 2013Q3

REPORT INFORMATION
  Report Type: Report from Study
  Country: US (occurrence: US)
  Receive Date: 20130822
  Receipt Date: 20130822
  Transmission Date: 20140515
  Serious: Yes (Hospitalization, Other)
  Sender: FDA-Public Use
  Company Number: US-ROCHE-1260860

PATIENT
  Age: 58 Year
  Sex: Female
  Weight: 54.48 kg

DRUGS (10)
  1. ACTEMRA [Suspect]
     Indication: RHEUMATOID ARTHRITIS
     Route: 042
     Dates: start: 201105
  2. ACTEMRA [Suspect]
     Dosage: LAST INFUSION ON 5/AUG/2013
     Route: 065
  3. RITUXAN [Suspect]
     Indication: RHEUMATOID ARTHRITIS
     Route: 042
     Dates: start: 20100913, end: 20100930
  4. RITUXAN [Suspect]
     Route: 065
     Dates: start: 20100930, end: 20100930
  5. LOSARTAN [Concomitant]
     Indication: BLOOD PRESSURE
     Route: 065
  6. ATENOLOL [Concomitant]
     Indication: BLOOD PRESSURE
     Route: 065
  7. OMEPRAZOLE [Concomitant]
     Indication: GASTROOESOPHAGEAL REFLUX DISEASE
     Route: 065
  8. RESTASIS [Concomitant]
     Dosage: 0.5%
     Route: 065
  9. XANAX [Concomitant]
     Dosage: HS
     Route: 065
  10. TRAZODONE [Concomitant]
     Dosage: HS
     Route: 065

REACTIONS (8)
  - Infusion related reaction [Recovering/Resolving]
  - Neuropathy peripheral [Unknown]
  - Arthralgia [Recovering/Resolving]
  - Influenza like illness [Unknown]
  - Flushing [Recovered/Resolved]
  - Hypertension [Recovered/Resolved]
  - Dizziness [Recovered/Resolved]
  - Hyperhidrosis [Recovered/Resolved]
